FAERS Safety Report 9914578 (Version 1)
Quarter: 2014Q1

REPORT INFORMATION
  Report Type: Spontaneous
  Country: US (occurrence: US)
  Receive Date: 20140220
  Receipt Date: 20140220
  Transmission Date: 20141002
  Serious: Yes (Other)
  Sender: FDA-Public Use
  Company Number: US-PFIZER INC-2014048235

PATIENT
  Age: 76 Year
  Sex: Female
  Weight: 74.8 kg

DRUGS (4)
  1. PRISTIQ [Suspect]
     Indication: DEPRESSION
     Dosage: 50 MG, DAILY
     Dates: start: 201304
  2. PRISTIQ [Suspect]
     Dosage: USED TO CUT THE PILL IN HALF OR TAKE THAT EVERY OTHER DAY INSTEAD OF TAKING THAT DAILY
  3. ZOLOFT [Suspect]
     Dosage: UNK
  4. CELEBREX [Suspect]
     Indication: OSTEOARTHRITIS
     Dosage: 200 MG, DAILY

REACTIONS (8)
  - Back disorder [Unknown]
  - Drug withdrawal syndrome [Unknown]
  - Tinnitus [Unknown]
  - Abdominal discomfort [Unknown]
  - Vomiting [Unknown]
  - Dizziness [Unknown]
  - Feeling abnormal [Unknown]
  - Intentional drug misuse [Unknown]
